FAERS Safety Report 6290175-4 (Version None)
Quarter: 2009Q3

REPORT INFORMATION
  Report Type: 
  Country: None (occurrence: None)
  Receive Date: 20090730
  Receipt Date: 20081231
  Transmission Date: 20100115
  Serious: No
  Sender: FDA-Public Use
  Company Number: US-BRISTOL-MYERS SQUIBB COMPANY-14458855

PATIENT
  Age: 77 Year
  Sex: Female
  Weight: 69 kg

DRUGS (5)
  1. COUMADIN [Suspect]
     Indication: THROMBOSIS
     Dosage: 5 MG DAILY ALTERNATING WITH 4 MG DAILY SINCE 26-DEC-2008
     Dates: start: 20081226
  2. ACIPHEX [Concomitant]
  3. CADUET [Concomitant]
  4. AMITRIPTYLINE HCL [Concomitant]
  5. SYNTHROID [Concomitant]

REACTIONS (1)
  - OEDEMA PERIPHERAL [None]
